FAERS Safety Report 10093575 (Version 1)
Quarter: 2014Q2

REPORT INFORMATION
  Report Type: Spontaneous
  Country: US (occurrence: US)
  Receive Date: 20140421
  Receipt Date: 20140421
  Transmission Date: 20141212
  Serious: No
  Sender: FDA-Public Use
  Company Number: US-SA-2013SA128778

PATIENT
  Age: 77 Year
  Sex: Female

DRUGS (2)
  1. ALLEGRA [Suspect]
     Dosage: PRODUCT STARTED 2-3 WEEKS AGO.
     Route: 048
  2. ALL OTHER THERAPEUTIC PRODUCTS [Concomitant]

REACTIONS (1)
  - Therapeutic response decreased [Unknown]
